FAERS Safety Report 5621649-4 (Version None)
Quarter: 2008Q1

REPORT INFORMATION
  Report Type: 
  Country: None (occurrence: None)
  Receive Date: 20080211
  Receipt Date: 20080131
  Transmission Date: 20080703
  Serious: Yes (Life-Threatening, Hospitalization)
  Sender: FDA-Public Use
  Company Number: DK-JNJFOC-20071109160

PATIENT
  Sex: Female
  Weight: 51 kg

DRUGS (8)
  1. REMICADE [Suspect]
     Indication: RHEUMATOID ARTHRITIS
     Dosage: 6TH INFUSION
     Route: 042
  2. METHOTREXATE [Concomitant]
  3. VOLAREN [Concomitant]
  4. RISPERDAL [Concomitant]
  5. FOLLMET [Concomitant]
  6. OXAZEPAM [Concomitant]
  7. NORITREN [Concomitant]
  8. UNICALCIUM [Concomitant]

REACTIONS (5)
  - ANAPHYLACTIC SHOCK [None]
  - BRONCHOSPASM [None]
  - CARDIAC FAILURE [None]
  - CHORDAE TENDINAE RUPTURE [None]
  - INFUSION RELATED REACTION [None]
